FAERS Safety Report 24846203 (Version 1)
Quarter: 2025Q1

REPORT INFORMATION
  Report Type: Spontaneous
  Country: US (occurrence: US)
  Receive Date: 20250115
  Receipt Date: 20250115
  Transmission Date: 20250409
  Serious: No
  Sender: PFIZER
  Company Number: US-PFIZER INC-PV202500004647

PATIENT
  Age: 56 Year
  Sex: Female

DRUGS (2)
  1. LINEZOLID [Suspect]
     Active Substance: LINEZOLID
     Indication: Mycobacterium abscessus infection
  2. LINEZOLID [Suspect]
     Active Substance: LINEZOLID
     Indication: Vascular access device culture positive

REACTIONS (4)
  - Nodule [Unknown]
  - Scar [Unknown]
  - Pain [Not Recovered/Not Resolved]
  - Erythema [Unknown]
